FAERS Safety Report 10449160 (Version 1)
Quarter: 2014Q3

REPORT INFORMATION
  Report Type: Spontaneous
  Country: US (occurrence: US)
  Receive Date: 20140912
  Receipt Date: 20140912
  Transmission Date: 20150326
  Serious: Yes (Other)
  Sender: FDA-Public Use
  Company Number: US-BRISTOL-MYERS SQUIBB COMPANY-21367990

PATIENT
  Age: 40 Year
  Sex: Female
  Weight: 92.06 kg

DRUGS (4)
  1. GLIPIZIDE. [Concomitant]
     Active Substance: GLIPIZIDE
  2. METFORMIN [Concomitant]
     Active Substance: METFORMIN HYDROCHLORIDE
  3. POTASSIUM [Concomitant]
     Active Substance: POTASSIUM
  4. ABILIFY [Suspect]
     Active Substance: ARIPIPRAZOLE
     Indication: BIPOLAR I DISORDER
     Dosage: EXPIRATION DATE (FROM 2005-2006)
     Dates: start: 2005

REACTIONS (7)
  - Injury [Unknown]
  - Blood glucose increased [Unknown]
  - Insomnia [Unknown]
  - Mental disorder [Unknown]
  - Depression [Unknown]
  - Limb traumatic amputation [Unknown]
  - Pain [Unknown]

NARRATIVE: CASE EVENT DATE: 20060102
